FAERS Safety Report 5866501-4 (Version None)
Quarter: 2008Q3

REPORT INFORMATION
  Report Type: 
  Country: None (occurrence: None)
  Receive Date: 20080902
  Receipt Date: 20080828
  Transmission Date: 20090109
  Serious: Yes (Death, Other)
  Sender: FDA-Public Use
  Company Number: PHHY2008JP19536

PATIENT
  Sex: Male
  Weight: 46 kg

DRUGS (15)
  1. SIMULECT [Suspect]
     Indication: RENAL TRANSPLANT
     Dosage: 20 MG, ONCE/SINGLE
     Route: 042
     Dates: start: 20070417, end: 20070417
  2. SIMULECT [Suspect]
     Dosage: 20 MG, ONCE/SINGLE
     Route: 042
     Dates: start: 20070421, end: 20070421
  3. PROGRAF [Suspect]
     Indication: RENAL TRANSPLANT
     Dosage: 0.7 MG/DAY
     Route: 042
     Dates: start: 20070417, end: 20070423
  4. PROGRAF [Suspect]
     Dosage: 8 MG/DAY
     Route: 048
     Dates: start: 20070423
  5. PREDONINE [Suspect]
     Indication: RENAL TRANSPLANT
     Dosage: 50 MG/DAY
     Route: 048
     Dates: start: 20070420
  6. CELLCEPT [Suspect]
     Indication: RENAL TRANSPLANT
     Dosage: 1000 MG/DAY
     Route: 048
     Dates: start: 20070417
  7. SOLU-MEDROL [Concomitant]
     Indication: RENAL TRANSPLANT
     Dosage: 625 MG
     Route: 042
     Dates: start: 20070417
  8. SOLU-MEDROL [Concomitant]
     Dosage: 250 MG
     Route: 042
  9. SOLU-MEDROL [Concomitant]
     Dosage: 125 MG
     Route: 042
     Dates: end: 20070419
  10. ZANTAC [Concomitant]
     Indication: ULCER
     Dosage: 2 DF
     Route: 042
     Dates: start: 20070417, end: 20070419
  11. ZANTAC [Concomitant]
     Dosage: 2 DF
     Route: 048
     Dates: start: 20070420
  12. PENTCILLIN [Concomitant]
     Indication: INFECTION PROPHYLAXIS
     Dosage: 2 G
     Route: 042
     Dates: start: 20070420, end: 20070425
  13. ALBUMIN (HUMAN) [Concomitant]
     Indication: HYPOALBUMINAEMIA
     Dosage: 100 ML
     Route: 042
     Dates: start: 20070417, end: 20070419
  14. GLOBULIN [Concomitant]
     Route: 065
  15. BACTRIM [Concomitant]
     Route: 065

REACTIONS (10)
  - C-REACTIVE PROTEIN INCREASED [None]
  - CHEST DISCOMFORT [None]
  - INTERSTITIAL LUNG DISEASE [None]
  - MECHANICAL VENTILATION [None]
  - PNEUMOCYSTIS JIROVECI PNEUMONIA [None]
  - PNEUMOTHORAX [None]
  - PYREXIA [None]
  - RESPIRATORY FAILURE [None]
  - THORACIC CAVITY DRAINAGE [None]
  - TRACHEOSTOMY [None]
